FAERS Safety Report 13495623 (Version 1)
Quarter: 2017Q2

REPORT INFORMATION
  Report Type: Report from Study
  Country: GB (occurrence: GB)
  Receive Date: 20170428
  Receipt Date: 20170428
  Transmission Date: 20170830
  Serious: Yes (Other)
  Sender: FDA-Public Use
  Company Number: GB-VIIV HEALTHCARE LIMITED-PT2017GSK061716

PATIENT
  Age: 71 Year
  Sex: Male

DRUGS (5)
  1. ABACAVIR SULFATE + LAMIVUDINE [Suspect]
     Active Substance: ABACAVIR SULFATE\LAMIVUDINE
     Indication: HIV INFECTION
  2. ISENTRESS [Concomitant]
     Active Substance: RALTEGRAVIR POTASSIUM
  3. EPIVIR [Concomitant]
     Active Substance: LAMIVUDINE
  4. REYATAZ [Concomitant]
     Active Substance: ATAZANAVIR SULFATE
  5. NEVIRAPINE. [Concomitant]
     Active Substance: NEVIRAPINE

REACTIONS (1)
  - Renal failure [Unknown]
